FAERS Safety Report 6259388-1 (Version None)
Quarter: 2009Q3

REPORT INFORMATION
  Report Type: 
  Country: None (occurrence: None)
  Receive Date: 20090706
  Receipt Date: 20090624
  Transmission Date: 20100115
  Serious: Yes (Hospitalization)
  Sender: FDA-Public Use
  Company Number: 1-18947759

PATIENT
  Age: 12 Month
  Sex: Male
  Weight: 9.9791 kg

DRUGS (1)
  1. ONDANSETRON HCL [Suspect]
     Indication: ACCIDENTAL OVERDOSE
     Dosage: 56-64 MG X1, ORAL
     Route: 048

REACTIONS (13)
  - ACCIDENTAL OVERDOSE [None]
  - ALANINE AMINOTRANSFERASE INCREASED [None]
  - ASPARTATE AMINOTRANSFERASE INCREASED [None]
  - BLOOD PRESSURE INCREASED [None]
  - DRUG TOXICITY [None]
  - ELECTROCARDIOGRAM QT PROLONGED [None]
  - GRAND MAL CONVULSION [None]
  - HAEMATOCRIT INCREASED [None]
  - NYSTAGMUS [None]
  - OXYGEN SATURATION DECREASED [None]
  - PLATELET COUNT INCREASED [None]
  - SEROTONIN SYNDROME [None]
  - SOMNOLENCE [None]
